FAERS Safety Report 4664438-X (Version None)
Quarter: 2005Q2

REPORT INFORMATION
  Report Type: 
  Country: None (occurrence: None)
  Receive Date: 20050518
  Receipt Date: 20050506
  Transmission Date: 20051028
  Serious: Yes (Other)
  Sender: FDA-Public Use
  Company Number: US-JNJFOC-20050502561

PATIENT
  Age: 68 Year
  Sex: Male

DRUGS (2)
  1. INFLIXIMAB [Suspect]
     Indication: RHEUMATOID ARTHRITIS
     Route: 042
  2. NSAIDS [Suspect]
     Indication: INFLAMMATION

REACTIONS (2)
  - GASTRITIS EROSIVE [None]
  - HIP ARTHROPLASTY [None]
